FAERS Safety Report 8487636 (Version 2)
Quarter: 2012Q4

REPORT INFORMATION
  Report Type: 
  Country: GB (occurrence: GB)
  Receive Date: 20120402
  Receipt Date: 20120921
  Transmission Date: 20130627
  Serious: Yes (Life-Threatening)
  Sender: FDA-Public Use
  Company Number: GB-GLAXOSMITHKLINE-B0791792A

PATIENT
  Age: 3 Month
  Sex: Female
  Weight: 6.4 kg

DRUGS (3)
  1. RANITIDINE [Suspect]
     Indication: GASTROOESOPHAGEAL REFLUX DISEASE
     Dosage: 12MG Per day
     Route: 048
     Dates: start: 20111208, end: 20111215
  2. DOMPERIDONE [Concomitant]
     Indication: GASTROOESOPHAGEAL REFLUX DISEASE
     Dosage: 7.2ML Per day
     Route: 048
     Dates: start: 20111208, end: 20111215
  3. GAVISCON [Concomitant]
     Indication: GASTROOESOPHAGEAL REFLUX DISEASE
     Route: 048
     Dates: start: 20111208, end: 20111215

REACTIONS (3)
  - Screaming [Recovered/Resolved]
  - Eye movement disorder [Recovered/Resolved]
  - Muscle twitching [Recovered/Resolved]
